FAERS Safety Report 5387674-6 (Version None)
Quarter: 2007Q3

REPORT INFORMATION
  Report Type: 
  Country: None (occurrence: None)
  Receive Date: 20070712
  Receipt Date: 20070712
  Transmission Date: 20080115
  Serious: No
  Sender: FDA-Public Use
  Company Number: None

PATIENT
  Age: 50 Year
  Sex: Male

DRUGS (2)
  1. SULFAMETHOXAZOLE AND TRIMETHOPRIM [Suspect]
     Dosage: 800/160MG TID PO
     Route: 048
     Dates: start: 20070309, end: 20070419
  2. DAPSONE [Suspect]
     Dosage: 100MG EVERY DAY PO
     Route: 048
     Dates: start: 20061024, end: 20070419

REACTIONS (1)
  - RASH [None]
